FAERS Safety Report 5663283-6 (Version None)
Quarter: 2008Q1

REPORT INFORMATION
  Report Type: 
  Country: None (occurrence: None)
  Receive Date: 20080313
  Receipt Date: 20080306
  Transmission Date: 20080703
  Serious: Yes (Life-Threatening, Hospitalization, Disabling, Other)
  Sender: FDA-Public Use
  Company Number: GB-TEVA-164966ISR

PATIENT
  Age: 11 Year
  Sex: Female
  Weight: 36 kg

DRUGS (2)
  1. VALPROIC ACID [Suspect]
     Indication: EPILEPSY
     Route: 048
     Dates: end: 20071030
  2. LAMOTRIGINE [Suspect]
     Indication: EPILEPSY
     Route: 048
     Dates: start: 20071011, end: 20071022

REACTIONS (14)
  - ANURIA [None]
  - COAGULOPATHY [None]
  - DISSEMINATED INTRAVASCULAR COAGULATION [None]
  - DRUG INTERACTION [None]
  - HYPOTENSION [None]
  - MALAISE [None]
  - MUCOSAL INFLAMMATION [None]
  - MULTI-ORGAN FAILURE [None]
  - PLATELET COUNT DECREASED [None]
  - RASH MACULO-PAPULAR [None]
  - RENAL FAILURE [None]
  - SEPTIC SHOCK [None]
  - STEVENS-JOHNSON SYNDROME [None]
  - TOXIC SHOCK SYNDROME STAPHYLOCOCCAL [None]
